FAERS Safety Report 8972012 (Version 3)
Quarter: 2014Q3

REPORT INFORMATION
  Report Type: Spontaneous
  Country: US (occurrence: US)
  Receive Date: 20121219
  Receipt Date: 20140715
  Transmission Date: 20150326
  Serious: No
  Sender: FDA-Public Use
  Company Number: US-MYLANLABS-2012S1022030

PATIENT
  Age: 50 Year
  Sex: Male

DRUGS (3)
  1. ANASTROZOLE TABLETS [Suspect]
     Active Substance: ANASTROZOLE
     Indication: BLOOD OESTROGEN INCREASED
     Route: 048
     Dates: start: 201206, end: 20121015
  2. LEVOTHYROXINE SODIUM TABLETS, USP [Suspect]
     Active Substance: LEVOTHYROXINE SODIUM
     Indication: HYPOTHYROIDISM
     Route: 048
     Dates: start: 20120808, end: 20121009
  3. TESTOSTERONE. [Concomitant]
     Active Substance: TESTOSTERONE
     Indication: BLOOD TESTOSTERONE ABNORMAL

REACTIONS (9)
  - Depression [Not Recovered/Not Resolved]
  - Dizziness [Recovered/Resolved]
  - Reaction to drug excipients [Not Recovered/Not Resolved]
  - Nervousness [Recovering/Resolving]
  - Mood altered [Recovering/Resolving]
  - Irritability [Recovering/Resolving]
  - Rash generalised [Not Recovered/Not Resolved]
  - Nausea [Recovering/Resolving]
  - Anxiety [Recovering/Resolving]

NARRATIVE: CASE EVENT DATE: 201208
